FAERS Safety Report 8374612-7 (Version None)
Quarter: 2012Q2

REPORT INFORMATION
  Report Type: 
  Country: None (occurrence: None)
  Receive Date: 20120521
  Receipt Date: 20110824
  Transmission Date: 20120825
  Serious: No
  Sender: FDA-Public Use
  Company Number: US-ASTRAZENECA-2011SE59108

PATIENT
  Age: 85 Year
  Sex: Male

DRUGS (6)
  1. METOPROLOL [Concomitant]
  2. LASIX [Concomitant]
  3. INSULIN [Concomitant]
  4. PRILOSEC OTC [Suspect]
     Indication: GASTROOESOPHAGEAL REFLUX PROPHYLAXIS
     Route: 048
     Dates: start: 20110812, end: 20110825
  5. FINASTERIDE [Concomitant]
  6. VITAMIN D [Concomitant]

REACTIONS (1)
  - BLOOD GLUCOSE INCREASED [None]
